FAERS Safety Report 15347852 (Version 1)
Quarter: 2018Q3

REPORT INFORMATION
  Report Type: Spontaneous
  Country: US (occurrence: US)
  Receive Date: 20180829
  Receipt Date: 20180829
  Transmission Date: 20181010
  Serious: Yes (Other)
  Sender: FDA-Public Use
  Company Number: None

PATIENT
  Age: 87 Year
  Sex: Female

DRUGS (1)
  1. DALVANCE [Suspect]
     Active Substance: DALBAVANCIN

REACTIONS (6)
  - Dyspnoea [None]
  - Asthenia [None]
  - Chest pain [None]
  - Spinal pain [None]
  - Hyperhidrosis [None]
  - Anxiety [None]

NARRATIVE: CASE EVENT DATE: 20180817
